FAERS Safety Report 11790884 (Version 1)
Quarter: 2015Q4

REPORT INFORMATION
  Report Type: Spontaneous
  Country: US (occurrence: US)
  Receive Date: 20151201
  Receipt Date: 20151201
  Transmission Date: 20160305
  Serious: No
  Sender: FDA-Public Use
  Company Number: US-SA-2014SA176322

PATIENT
  Sex: Female

DRUGS (3)
  1. CITRUCEL [Concomitant]
     Active Substance: METHYLCELLULOSE (4000 MPA.S)
  2. RENVELA [Suspect]
     Active Substance: SEVELAMER CARBONATE
     Route: 065
  3. TUMS [Concomitant]
     Active Substance: CALCIUM CARBONATE

REACTIONS (2)
  - Hyperphosphataemia [Unknown]
  - Treatment noncompliance [Unknown]
